FAERS Safety Report 4762330-3 (Version None)
Quarter: 2005Q3

REPORT INFORMATION
  Report Type: 
  Country: None (occurrence: None)
  Receive Date: 20050901
  Receipt Date: 20050511
  Transmission Date: 20060218
  Serious: No
  Sender: FDA-Public Use
  Company Number: 200510956BWH

PATIENT
  Sex: Female

DRUGS (6)
  1. LEVITRA [Suspect]
     Dosage: ORAL
     Route: 048
  2. ACETAMINOPHEN AND OXYCODONE HCL [Concomitant]
  3. KLONOPIN [Concomitant]
  4. KEPPRA [Concomitant]
  5. BEXTRA [Concomitant]
  6. ZANAFLEX [Concomitant]

REACTIONS (1)
  - NO ADVERSE DRUG EFFECT [None]
